FAERS Safety Report 20156782 (Version 1)
Quarter: 2021Q4

REPORT INFORMATION
  Report Type: Report from Study
  Country: US (occurrence: US)
  Receive Date: 20211207
  Receipt Date: 20211207
  Transmission Date: 20220303
  Serious: No
  Sender: FDA-Public Use
  Company Number: US-KYOWAKIRIN-2021BKK020159

PATIENT

DRUGS (1)
  1. CRYSVITA [Suspect]
     Active Substance: BUROSUMAB-TWZA
     Indication: Hereditary hypophosphataemic rickets
     Dosage: 40 MG, EVERY 28 DAYS
     Route: 058
     Dates: start: 20191123

REACTIONS (5)
  - Blood phosphorus decreased [Unknown]
  - Blood calcium increased [Unknown]
  - Bone pain [Unknown]
  - Asthenia [Unknown]
  - Fatigue [Unknown]
